FAERS Safety Report 8260145-5 (Version None)
Quarter: 2012Q2

REPORT INFORMATION
  Report Type: 
  Country: None (occurrence: None)
  Receive Date: 20120404
  Receipt Date: 20120329
  Transmission Date: 20120825
  Serious: Yes (Hospitalization)
  Sender: FDA-Public Use
  Company Number: US-JNJFOC-20120314916

PATIENT
  Age: 15 Year
  Sex: Male

DRUGS (2)
  1. NAPROXEN [Suspect]
     Indication: SUICIDE ATTEMPT
     Route: 048
  2. IBUPROFEN [Suspect]
     Indication: SUICIDE ATTEMPT
     Route: 048

REACTIONS (2)
  - INTENTIONAL OVERDOSE [None]
  - SHOCK [None]
